FAERS Safety Report 6366091-6 (Version None)
Quarter: 2009Q3

REPORT INFORMATION
  Report Type: 
  Country: None (occurrence: None)
  Receive Date: 20090920
  Receipt Date: 20090127
  Transmission Date: 20100115
  Serious: No
  Sender: FDA-Public Use
  Company Number: US-BAUSCH-2009BL000401

PATIENT
  Age: 44 Year
  Sex: Male

DRUGS (3)
  1. NEOMYCIN AND POLYMXIN B SULFATES AND HYDROCORTISONE [Suspect]
     Indication: AURICULAR SWELLING
     Route: 001
     Dates: end: 20090120
  2. NEOMYCIN AND POLYMXIN B SULFATES AND HYDROCORTISONE [Suspect]
     Indication: ERYTHEMA
     Route: 001
     Dates: end: 20090120
  3. NEOMYCIN AND POLYMXIN B SULFATES AND HYDROCORTISONE [Suspect]
     Indication: EAR PAIN
     Route: 001
     Dates: end: 20090120

REACTIONS (1)
  - ERECTILE DYSFUNCTION [None]
